FAERS Safety Report 5960902-1 (Version None)
Quarter: 2008Q4

REPORT INFORMATION
  Report Type: 
  Country: None (occurrence: None)
  Receive Date: 20081121
  Receipt Date: 20081112
  Transmission Date: 20090506
  Serious: Yes (Other)
  Sender: FDA-Public Use
  Company Number: US-JNJFOC-20070504197

PATIENT
  Sex: Male
  Weight: 113.38 kg

DRUGS (19)
  1. DOXIL [Suspect]
     Route: 042
  2. DOXIL [Suspect]
     Indication: MULTIPLE MYELOMA
     Dosage: DAY 4 OF EACH CYCLE
     Route: 042
  3. VELCADE [Suspect]
     Route: 042
  4. VELCADE [Suspect]
     Indication: MULTIPLE MYELOMA
     Dosage: DAYS 1, 4, 8 AND 11 FOLLOWED BY A 10 DAY BREAK, CYCLE 1
     Route: 042
  5. DEXAMETHASONE TAB [Suspect]
     Dosage: DAYS 1, 2, 4, 5, 8, 9, 11 AND 12 OF CYCLE 2-6
     Route: 048
  6. DEXAMETHASONE TAB [Suspect]
     Indication: MULTIPLE MYELOMA
     Dosage: DAYS 1, 2, 4, 5, 8, 9, 11 AND 12 OF CYCLE 1
     Route: 048
  7. ZOMETA [Concomitant]
     Route: 065
  8. CHANTIX [Concomitant]
     Route: 065
  9. LASIX [Concomitant]
     Route: 065
  10. PEPCID [Concomitant]
     Route: 065
  11. ERGOCALCIFEROL [Concomitant]
     Route: 065
  12. ASPIRIN [Concomitant]
     Route: 065
  13. POTASSIUM CHLORIDE [Concomitant]
     Route: 065
  14. PANTHENOL [Concomitant]
     Route: 065
  15. NICOTINAMIDE [Concomitant]
     Route: 065
  16. RIBOFLAVIN TAB [Concomitant]
     Route: 065
  17. THIAMINE HCL [Concomitant]
     Route: 065
  18. RETINOL [Concomitant]
     Route: 065
  19. FOLIC ACID [Concomitant]
     Route: 065

REACTIONS (1)
  - HEPATITIS C [None]
